FAERS Safety Report 6828533-9 (Version None)
Quarter: 2010Q3

REPORT INFORMATION
  Report Type: 
  Country: None (occurrence: None)
  Receive Date: 20100708
  Receipt Date: 20100708
  Transmission Date: 20110219
  Serious: Yes (Other)
  Sender: FDA-Public Use
  Company Number: None

PATIENT
  Age: 59 Year
  Sex: Male

DRUGS (3)
  1. ENOXAPARIN SODIUM [Suspect]
     Indication: ANTICOAGULANT THERAPY
     Dosage: 3960 IU IV
     Route: 042
     Dates: start: 20091105, end: 20091105
  2. UFH-UNFRACTIONATED [Suspect]
     Indication: MYOCARDIAL INFARCTION
     Dosage: 5055 IU  IV
     Route: 042
     Dates: start: 20091106, end: 20091106
  3. ABCIXIMAB [Concomitant]

REACTIONS (1)
  - EPISTAXIS [None]
